FAERS Safety Report 18125334 (Version 2)
Quarter: 2022Q1

REPORT INFORMATION
  Report Type: Spontaneous
  Country: CA (occurrence: CA)
  Receive Date: 20200807
  Receipt Date: 20220125
  Transmission Date: 20220423
  Serious: Yes (Hospitalization, Disabling, Other)
  Sender: FDA-Public Use
  Company Number: CA-ALLERGAN-2029252US

PATIENT
  Sex: Female
  Weight: 3.18 kg

DRUGS (1)
  1. CITALOPRAM HYDROBROMIDE [Suspect]
     Active Substance: CITALOPRAM HYDROBROMIDE
     Indication: Exposure during pregnancy
     Dosage: UNK, QD
     Route: 064
     Dates: start: 2016, end: 2017

REACTIONS (4)
  - Motor dysfunction [Recovering/Resolving]
  - Neonatal respiratory arrest [Recovering/Resolving]
  - Hypotonia [Recovering/Resolving]
  - Foetal exposure during pregnancy [Unknown]

NARRATIVE: CASE EVENT DATE: 20170101
